FAERS Safety Report 9053586 (Version 1)
Quarter: 2013Q1

REPORT INFORMATION
  Report Type: Report from Study
  Country: CA (occurrence: CA)
  Receive Date: 20130208
  Receipt Date: 20130208
  Transmission Date: 20140127
  Serious: Yes (Other)
  Sender: FDA-Public Use
  Company Number: CA-JNJFOC-20130116256

PATIENT
  Age: 48 None
  Sex: Female
  Weight: 58.8 kg

DRUGS (2)
  1. REMICADE [Suspect]
     Indication: CROHN^S DISEASE
     Route: 042
     Dates: start: 2009
  2. ENTOCORT [Concomitant]
     Route: 065
     Dates: start: 2012

REACTIONS (4)
  - Groin pain [Recovered/Resolved]
  - Crohn^s disease [Recovering/Resolving]
  - Rash [Unknown]
  - Dry skin [Unknown]
